FAERS Safety Report 10409471 (Version 1)
Quarter: 2014Q3

REPORT INFORMATION
  Report Type: Spontaneous
  Country: US (occurrence: US)
  Receive Date: 20140826
  Receipt Date: 20140826
  Transmission Date: 20150326
  Serious: No
  Sender: FDA-Public Use
  Company Number: US-BAUSCH-SYM-2013-12814

PATIENT
  Age: 54 Year
  Sex: Male
  Weight: 73.09 kg

DRUGS (2)
  1. CELEXA [Concomitant]
     Active Substance: CITALOPRAM HYDROBROMIDE
     Indication: PRODUCT USED FOR UNKNOWN INDICATION
  2. ACYCLOVIR 5% OINTMENT [Suspect]
     Active Substance: ACYCLOVIR
     Indication: ORAL HERPES
     Dosage: APPLIED TWICE, ONE TIME
     Route: 061
     Dates: start: 20131106, end: 20131106

REACTIONS (2)
  - Application site pain [Recovering/Resolving]
  - Application site pruritus [Recovering/Resolving]

NARRATIVE: CASE EVENT DATE: 20131106
